FAERS Safety Report 5700575-6 (Version None)
Quarter: 2008Q2

REPORT INFORMATION
  Report Type: 
  Country: None (occurrence: None)
  Receive Date: 20080410
  Receipt Date: 20080402
  Transmission Date: 20081010
  Serious: Yes (Death)
  Sender: FDA-Public Use
  Company Number: BR-JNJFOC-20080205429

PATIENT
  Age: 51 Year
  Sex: Male

DRUGS (1)
  1. TRAMADOL HCL [Suspect]
     Indication: ANALGESIA
     Route: 048

REACTIONS (1)
  - HEPATIC NEOPLASM MALIGNANT [None]
